FAERS Safety Report 24789645 (Version 1)
Quarter: 2024Q4

REPORT INFORMATION
  Report Type: Report from Study
  Country: JP (occurrence: JP)
  Receive Date: 20241230
  Receipt Date: 20241230
  Transmission Date: 20250114
  Serious: Yes (Hospitalization)
  Sender: ALEXION PHARMACEUTICALS
  Company Number: JP-ASTRAZENECA-202409JPN014782JP

PATIENT
  Age: 11 Year
  Weight: 16.8 kg

DRUGS (148)
  1. STRENSIQ [Suspect]
     Active Substance: ASFOTASE ALFA
     Indication: Hypophosphatasia
     Dosage: 2 MILLIGRAM/KILOGRAM, TIW
     Route: 058
  2. STRENSIQ [Suspect]
     Active Substance: ASFOTASE ALFA
     Dosage: 2 MILLIGRAM/KILOGRAM, TIW
  3. STRENSIQ [Suspect]
     Active Substance: ASFOTASE ALFA
     Dosage: 2 MILLIGRAM/KILOGRAM, TIW
  4. STRENSIQ [Suspect]
     Active Substance: ASFOTASE ALFA
     Dosage: 2 MILLIGRAM/KILOGRAM, TIW
     Route: 058
  5. STRENSIQ [Suspect]
     Active Substance: ASFOTASE ALFA
     Dosage: 1.8 MILLIGRAM/KILOGRAM, SINGLE
  6. STRENSIQ [Suspect]
     Active Substance: ASFOTASE ALFA
     Dosage: 1.8 MILLIGRAM/KILOGRAM, SINGLE
     Route: 058
  7. STRENSIQ [Suspect]
     Active Substance: ASFOTASE ALFA
     Dosage: 1.8 MILLIGRAM/KILOGRAM, SINGLE
  8. STRENSIQ [Suspect]
     Active Substance: ASFOTASE ALFA
     Dosage: 1.8 MILLIGRAM/KILOGRAM, SINGLE
     Route: 058
  9. STRENSIQ [Suspect]
     Active Substance: ASFOTASE ALFA
     Dosage: 1.6 MILLIGRAM/KILOGRAM, TIW
  10. STRENSIQ [Suspect]
     Active Substance: ASFOTASE ALFA
     Dosage: 1.6 MILLIGRAM/KILOGRAM, TIW
  11. STRENSIQ [Suspect]
     Active Substance: ASFOTASE ALFA
     Dosage: 1.6 MILLIGRAM/KILOGRAM, TIW
     Route: 058
  12. STRENSIQ [Suspect]
     Active Substance: ASFOTASE ALFA
     Dosage: 1.6 MILLIGRAM/KILOGRAM, TIW
     Route: 058
  13. STRENSIQ [Suspect]
     Active Substance: ASFOTASE ALFA
     Dosage: 2 MILLIGRAM/KILOGRAM, TIW
  14. STRENSIQ [Suspect]
     Active Substance: ASFOTASE ALFA
     Dosage: 2 MILLIGRAM/KILOGRAM, TIW
     Route: 058
  15. STRENSIQ [Suspect]
     Active Substance: ASFOTASE ALFA
     Dosage: 2 MILLIGRAM/KILOGRAM, TIW
  16. STRENSIQ [Suspect]
     Active Substance: ASFOTASE ALFA
     Dosage: 2 MILLIGRAM/KILOGRAM, TIW
     Route: 058
  17. PHENOBARBITAL [Concomitant]
     Active Substance: PHENOBARBITAL
     Indication: Hypophosphatasia
     Dosage: UNK
  18. PHENOBARBITAL [Concomitant]
     Active Substance: PHENOBARBITAL
     Dosage: UNK
     Route: 048
  19. PHENOBARBITAL [Concomitant]
     Active Substance: PHENOBARBITAL
     Dosage: UNK
     Route: 048
  20. PHENOBARBITAL [Concomitant]
     Active Substance: PHENOBARBITAL
     Dosage: UNK
  21. PHENOBARBITAL [Concomitant]
     Active Substance: PHENOBARBITAL
     Dosage: 55 MILLIGRAM, BID
  22. PHENOBARBITAL [Concomitant]
     Active Substance: PHENOBARBITAL
     Dosage: 55 MILLIGRAM, BID
     Route: 048
  23. PHENOBARBITAL [Concomitant]
     Active Substance: PHENOBARBITAL
     Dosage: 55 MILLIGRAM, BID
     Route: 048
  24. PHENOBARBITAL [Concomitant]
     Active Substance: PHENOBARBITAL
     Dosage: 55 MILLIGRAM, BID
  25. PHENOBARBITAL [Concomitant]
     Active Substance: PHENOBARBITAL
     Dosage: 27.5 MILLIGRAM, BID
     Route: 048
  26. PHENOBARBITAL [Concomitant]
     Active Substance: PHENOBARBITAL
     Dosage: 27.5 MILLIGRAM, BID
  27. PHENOBARBITAL [Concomitant]
     Active Substance: PHENOBARBITAL
     Dosage: 27.5 MILLIGRAM, BID
  28. PHENOBARBITAL [Concomitant]
     Active Substance: PHENOBARBITAL
     Dosage: 27.5 MILLIGRAM, BID
     Route: 048
  29. PHENOBARBITAL [Concomitant]
     Active Substance: PHENOBARBITAL
     Dosage: 44 MILLIGRAM, BID
     Route: 048
  30. PHENOBARBITAL [Concomitant]
     Active Substance: PHENOBARBITAL
     Dosage: 44 MILLIGRAM, BID
  31. PHENOBARBITAL [Concomitant]
     Active Substance: PHENOBARBITAL
     Dosage: 44 MILLIGRAM, BID
  32. PHENOBARBITAL [Concomitant]
     Active Substance: PHENOBARBITAL
     Dosage: 44 MILLIGRAM, BID
     Route: 048
  33. PHENOBARBITAL [Concomitant]
     Active Substance: PHENOBARBITAL
     Dosage: 45 MILLIGRAM, BID
     Route: 048
  34. PHENOBARBITAL [Concomitant]
     Active Substance: PHENOBARBITAL
     Dosage: 45 MILLIGRAM, BID
  35. PHENOBARBITAL [Concomitant]
     Active Substance: PHENOBARBITAL
     Dosage: 45 MILLIGRAM, BID
  36. PHENOBARBITAL [Concomitant]
     Active Substance: PHENOBARBITAL
     Dosage: 45 MILLIGRAM, BID
     Route: 048
  37. PHENOBARBITAL [Concomitant]
     Active Substance: PHENOBARBITAL
     Dosage: 50 MILLIGRAM, BID
  38. PHENOBARBITAL [Concomitant]
     Active Substance: PHENOBARBITAL
     Dosage: 50 MILLIGRAM, BID
     Route: 048
  39. PHENOBARBITAL [Concomitant]
     Active Substance: PHENOBARBITAL
     Dosage: 50 MILLIGRAM, BID
  40. PHENOBARBITAL [Concomitant]
     Active Substance: PHENOBARBITAL
     Dosage: 50 MILLIGRAM, BID
     Route: 048
  41. RIVOTRIL [Concomitant]
     Active Substance: CLONAZEPAM
     Indication: Hypophosphatasia
     Dosage: 2.25 MILLIGRAM, BID
  42. RIVOTRIL [Concomitant]
     Active Substance: CLONAZEPAM
     Dosage: 2.25 MILLIGRAM, BID
     Route: 048
  43. RIVOTRIL [Concomitant]
     Active Substance: CLONAZEPAM
     Dosage: 2.25 MILLIGRAM, BID
  44. RIVOTRIL [Concomitant]
     Active Substance: CLONAZEPAM
     Dosage: 2.25 MILLIGRAM, BID
     Route: 048
  45. RIVOTRIL [Concomitant]
     Active Substance: CLONAZEPAM
     Dosage: 2.5 MILLIGRAM, BID
  46. RIVOTRIL [Concomitant]
     Active Substance: CLONAZEPAM
     Dosage: 2.5 MILLIGRAM, BID
  47. RIVOTRIL [Concomitant]
     Active Substance: CLONAZEPAM
     Dosage: 2.5 MILLIGRAM, BID
     Route: 048
  48. RIVOTRIL [Concomitant]
     Active Substance: CLONAZEPAM
     Dosage: 2.5 MILLIGRAM, BID
     Route: 048
  49. RIVOTRIL [Concomitant]
     Active Substance: CLONAZEPAM
     Dosage: 3 MILLIGRAM, BID
  50. RIVOTRIL [Concomitant]
     Active Substance: CLONAZEPAM
     Dosage: 3 MILLIGRAM, BID
     Route: 048
  51. RIVOTRIL [Concomitant]
     Active Substance: CLONAZEPAM
     Dosage: 3 MILLIGRAM, BID
  52. RIVOTRIL [Concomitant]
     Active Substance: CLONAZEPAM
     Dosage: 3 MILLIGRAM, BID
     Route: 048
  53. RIVOTRIL [Concomitant]
     Active Substance: CLONAZEPAM
     Dosage: 3.5 MILLIGRAM, BID
  54. RIVOTRIL [Concomitant]
     Active Substance: CLONAZEPAM
     Dosage: 3.5 MILLIGRAM, BID
     Route: 048
  55. RIVOTRIL [Concomitant]
     Active Substance: CLONAZEPAM
     Dosage: 3.5 MILLIGRAM, BID
  56. RIVOTRIL [Concomitant]
     Active Substance: CLONAZEPAM
     Dosage: 3.5 MILLIGRAM, BID
     Route: 048
  57. LEVETIRACETAM [Concomitant]
     Active Substance: LEVETIRACETAM
     Indication: Hypophosphatasia
     Dosage: 50 UNK, UNK
     Route: 048
  58. LEVETIRACETAM [Concomitant]
     Active Substance: LEVETIRACETAM
     Dosage: 50 UNK, UNK
     Route: 048
  59. LEVETIRACETAM [Concomitant]
     Active Substance: LEVETIRACETAM
     Dosage: 50 UNK, UNK
  60. LEVETIRACETAM [Concomitant]
     Active Substance: LEVETIRACETAM
     Dosage: 50 UNK, UNK
  61. LEVETIRACETAM [Concomitant]
     Active Substance: LEVETIRACETAM
     Dosage: 50 MILLIGRAM, BID
  62. LEVETIRACETAM [Concomitant]
     Active Substance: LEVETIRACETAM
     Dosage: 50 MILLIGRAM, BID
  63. LEVETIRACETAM [Concomitant]
     Active Substance: LEVETIRACETAM
     Dosage: 50 MILLIGRAM, BID
     Route: 048
  64. LEVETIRACETAM [Concomitant]
     Active Substance: LEVETIRACETAM
     Dosage: 50 MILLIGRAM, BID
     Route: 048
  65. LEVETIRACETAM [Concomitant]
     Active Substance: LEVETIRACETAM
     Dosage: 110 MILLIGRAM, BID
     Route: 048
  66. LEVETIRACETAM [Concomitant]
     Active Substance: LEVETIRACETAM
     Dosage: 110 MILLIGRAM, BID
  67. LEVETIRACETAM [Concomitant]
     Active Substance: LEVETIRACETAM
     Dosage: 110 MILLIGRAM, BID
  68. LEVETIRACETAM [Concomitant]
     Active Substance: LEVETIRACETAM
     Dosage: 110 MILLIGRAM, BID
     Route: 048
  69. LEVETIRACETAM [Concomitant]
     Active Substance: LEVETIRACETAM
     Dosage: 150 MILLIGRAM, BID
     Route: 048
  70. LEVETIRACETAM [Concomitant]
     Active Substance: LEVETIRACETAM
     Dosage: 150 MILLIGRAM, BID
  71. LEVETIRACETAM [Concomitant]
     Active Substance: LEVETIRACETAM
     Dosage: 150 MILLIGRAM, BID
     Route: 048
  72. LEVETIRACETAM [Concomitant]
     Active Substance: LEVETIRACETAM
     Dosage: 150 MILLIGRAM, BID
  73. LEVETIRACETAM [Concomitant]
     Active Substance: LEVETIRACETAM
     Dosage: 225 MILLIGRAM, BID
  74. LEVETIRACETAM [Concomitant]
     Active Substance: LEVETIRACETAM
     Dosage: 225 MILLIGRAM, BID
     Route: 048
  75. LEVETIRACETAM [Concomitant]
     Active Substance: LEVETIRACETAM
     Dosage: 225 MILLIGRAM, BID
  76. LEVETIRACETAM [Concomitant]
     Active Substance: LEVETIRACETAM
     Dosage: 225 MILLIGRAM, BID
     Route: 048
  77. LEVETIRACETAM [Concomitant]
     Active Substance: LEVETIRACETAM
     Dosage: 300 MILLIGRAM, BID
  78. LEVETIRACETAM [Concomitant]
     Active Substance: LEVETIRACETAM
     Dosage: 300 MILLIGRAM, BID
     Route: 048
  79. LEVETIRACETAM [Concomitant]
     Active Substance: LEVETIRACETAM
     Dosage: 300 MILLIGRAM, BID
  80. LEVETIRACETAM [Concomitant]
     Active Substance: LEVETIRACETAM
     Dosage: 300 MILLIGRAM, BID
     Route: 048
  81. LEVETIRACETAM [Concomitant]
     Active Substance: LEVETIRACETAM
     Dosage: 400 MILLIGRAM, BID
  82. LEVETIRACETAM [Concomitant]
     Active Substance: LEVETIRACETAM
     Dosage: 400 MILLIGRAM, BID
     Route: 048
  83. LEVETIRACETAM [Concomitant]
     Active Substance: LEVETIRACETAM
     Dosage: 400 MILLIGRAM, BID
  84. LEVETIRACETAM [Concomitant]
     Active Substance: LEVETIRACETAM
     Dosage: 400 MILLIGRAM, BID
     Route: 048
  85. PYRIDOXINE HYDROCHLORIDE [Concomitant]
     Active Substance: PYRIDOXINE HYDROCHLORIDE
     Indication: Hypophosphatasia
     Dosage: 225 MILLIGRAM, BID
  86. PYRIDOXINE HYDROCHLORIDE [Concomitant]
     Active Substance: PYRIDOXINE HYDROCHLORIDE
     Dosage: 225 MILLIGRAM, BID
     Route: 048
  87. PYRIDOXINE HYDROCHLORIDE [Concomitant]
     Active Substance: PYRIDOXINE HYDROCHLORIDE
     Dosage: 225 MILLIGRAM, BID
  88. PYRIDOXINE HYDROCHLORIDE [Concomitant]
     Active Substance: PYRIDOXINE HYDROCHLORIDE
     Dosage: 225 MILLIGRAM, BID
     Route: 048
  89. Mucosal [Concomitant]
     Indication: Prophylaxis
     Dosage: 4.5 MILLIGRAM, BID
  90. Mucosal [Concomitant]
     Dosage: 4.5 MILLIGRAM, BID
     Route: 048
  91. Mucosal [Concomitant]
     Dosage: 4.5 MILLIGRAM, BID
  92. Mucosal [Concomitant]
     Dosage: 4.5 MILLIGRAM, BID
     Route: 048
  93. Mucosal [Concomitant]
     Dosage: 3 MILLIGRAM, TID
     Route: 048
  94. Mucosal [Concomitant]
     Dosage: 3 MILLIGRAM, TID
  95. Mucosal [Concomitant]
     Dosage: 3 MILLIGRAM, TID
     Route: 048
  96. Mucosal [Concomitant]
     Dosage: 3 MILLIGRAM, TID
  97. Mucosal [Concomitant]
     Dosage: 7.5 MILLIGRAM, BID
     Route: 048
  98. Mucosal [Concomitant]
     Dosage: 7.5 MILLIGRAM, BID
  99. Mucosal [Concomitant]
     Dosage: 7.5 MILLIGRAM, BID
     Route: 048
  100. Mucosal [Concomitant]
     Dosage: 7.5 MILLIGRAM, BID
  101. CARBOCYSTEINE [Concomitant]
     Active Substance: CARBOCYSTEINE
     Indication: Prophylaxis
     Dosage: 1.25 MILLILITER, TID
     Route: 048
  102. CARBOCYSTEINE [Concomitant]
     Active Substance: CARBOCYSTEINE
     Dosage: 1.25 MILLILITER, TID
  103. CARBOCYSTEINE [Concomitant]
     Active Substance: CARBOCYSTEINE
     Dosage: 1.25 MILLILITER, TID
     Route: 048
  104. CARBOCYSTEINE [Concomitant]
     Active Substance: CARBOCYSTEINE
     Dosage: 1.25 MILLILITER, TID
  105. CARBOCYSTEINE [Concomitant]
     Active Substance: CARBOCYSTEINE
     Dosage: 100 MILLIGRAM, TID
     Route: 048
  106. CARBOCYSTEINE [Concomitant]
     Active Substance: CARBOCYSTEINE
     Dosage: 100 MILLIGRAM, TID
  107. CARBOCYSTEINE [Concomitant]
     Active Substance: CARBOCYSTEINE
     Dosage: 100 MILLIGRAM, TID
     Route: 048
  108. CARBOCYSTEINE [Concomitant]
     Active Substance: CARBOCYSTEINE
     Dosage: 100 MILLIGRAM, TID
  109. CARBOCYSTEINE [Concomitant]
     Active Substance: CARBOCYSTEINE
     Dosage: 200 MILLIGRAM, BID
  110. CARBOCYSTEINE [Concomitant]
     Active Substance: CARBOCYSTEINE
     Dosage: 200 MILLIGRAM, BID
     Route: 048
  111. CARBOCYSTEINE [Concomitant]
     Active Substance: CARBOCYSTEINE
     Dosage: 200 MILLIGRAM, BID
  112. CARBOCYSTEINE [Concomitant]
     Active Substance: CARBOCYSTEINE
     Dosage: 200 MILLIGRAM, BID
     Route: 048
  113. LEVOCARNITINE [Concomitant]
     Active Substance: LEVOCARNITINE
     Indication: Prophylaxis
     Dosage: 1 MILLILITER, TID
     Route: 048
  114. LEVOCARNITINE [Concomitant]
     Active Substance: LEVOCARNITINE
     Dosage: 1 MILLILITER, TID
  115. LEVOCARNITINE [Concomitant]
     Active Substance: LEVOCARNITINE
     Dosage: 1 MILLILITER, TID
     Route: 048
  116. LEVOCARNITINE [Concomitant]
     Active Substance: LEVOCARNITINE
     Dosage: 1 MILLILITER, TID
  117. LEVOCARNITINE [Concomitant]
     Active Substance: LEVOCARNITINE
     Dosage: 1 MILLILITER, BID
     Route: 048
  118. LEVOCARNITINE [Concomitant]
     Active Substance: LEVOCARNITINE
     Dosage: 1 MILLILITER, BID
  119. LEVOCARNITINE [Concomitant]
     Active Substance: LEVOCARNITINE
     Dosage: 1 MILLILITER, BID
     Route: 048
  120. LEVOCARNITINE [Concomitant]
     Active Substance: LEVOCARNITINE
     Dosage: 1 MILLILITER, BID
  121. ROZEREM [Concomitant]
     Active Substance: RAMELTEON
     Indication: Prophylaxis
     Dosage: 2 MILLIGRAM, QD
  122. ROZEREM [Concomitant]
     Active Substance: RAMELTEON
     Indication: Insomnia
     Dosage: 2 MILLIGRAM, QD
     Route: 048
  123. ROZEREM [Concomitant]
     Active Substance: RAMELTEON
     Dosage: 4 MILLIGRAM, QD
  124. ROZEREM [Concomitant]
     Active Substance: RAMELTEON
     Dosage: 4 MILLIGRAM, QD
     Route: 048
  125. Levetiracetam ds [Concomitant]
     Indication: Hypophosphatasia
     Dosage: 400 MILLIGRAM, BID
     Route: 048
  126. Levetiracetam ds [Concomitant]
     Dosage: 400 MILLIGRAM, BID
  127. FYCOMPA [Concomitant]
     Active Substance: PERAMPANEL
     Indication: Hypophosphatasia
     Dosage: 2 MILLIGRAM, QD
     Route: 048
  128. FYCOMPA [Concomitant]
     Active Substance: PERAMPANEL
     Dosage: 2 MILLIGRAM, QD
  129. FYCOMPA [Concomitant]
     Active Substance: PERAMPANEL
     Dosage: 2 MILLIGRAM, QD
     Route: 048
  130. FYCOMPA [Concomitant]
     Active Substance: PERAMPANEL
     Dosage: 2 MILLIGRAM, QD
  131. FYCOMPA [Concomitant]
     Active Substance: PERAMPANEL
     Dosage: 3 MILLIGRAM, QD
  132. FYCOMPA [Concomitant]
     Active Substance: PERAMPANEL
     Dosage: 3 MILLIGRAM, QD
     Route: 048
  133. FYCOMPA [Concomitant]
     Active Substance: PERAMPANEL
     Dosage: 3 MILLIGRAM, QD
     Route: 048
  134. FYCOMPA [Concomitant]
     Active Substance: PERAMPANEL
     Dosage: 3 MILLIGRAM, QD
  135. FYCOMPA [Concomitant]
     Active Substance: PERAMPANEL
     Dosage: 2.5 MILLIGRAM, QD
  136. FYCOMPA [Concomitant]
     Active Substance: PERAMPANEL
     Dosage: 2.5 MILLIGRAM, QD
     Route: 048
  137. FYCOMPA [Concomitant]
     Active Substance: PERAMPANEL
     Dosage: 2.5 MILLIGRAM, QD
     Route: 048
  138. FYCOMPA [Concomitant]
     Active Substance: PERAMPANEL
     Dosage: 2.5 MILLIGRAM, QD
  139. AMBROXOL HYDROCHLORIDE [Concomitant]
     Active Substance: AMBROXOL HYDROCHLORIDE
     Indication: Prophylaxis
     Dosage: 0.75 MILLILITER, BID
  140. AMBROXOL HYDROCHLORIDE [Concomitant]
     Active Substance: AMBROXOL HYDROCHLORIDE
     Dosage: 0.75 MILLILITER, BID
     Route: 048
  141. AMBROXOL HYDROCHLORIDE [Concomitant]
     Active Substance: AMBROXOL HYDROCHLORIDE
     Dosage: 0.75 MILLILITER, BID
  142. AMBROXOL HYDROCHLORIDE [Concomitant]
     Active Substance: AMBROXOL HYDROCHLORIDE
     Dosage: 0.75 MILLILITER, BID
     Route: 048
  143. AMBROXOL HYDROCHLORIDE [Concomitant]
     Active Substance: AMBROXOL HYDROCHLORIDE
     Dosage: 7.5 MILLIGRAM, BID
  144. AMBROXOL HYDROCHLORIDE [Concomitant]
     Active Substance: AMBROXOL HYDROCHLORIDE
     Dosage: 7.5 MILLIGRAM, BID
     Route: 048
  145. AMBROXOL HYDROCHLORIDE [Concomitant]
     Active Substance: AMBROXOL HYDROCHLORIDE
     Dosage: 7.5 MILLIGRAM, BID
  146. AMBROXOL HYDROCHLORIDE [Concomitant]
     Active Substance: AMBROXOL HYDROCHLORIDE
     Dosage: 7.5 MILLIGRAM, BID
     Route: 048
  147. NITRAZEPAM [Concomitant]
     Active Substance: NITRAZEPAM
     Indication: Hypophosphatasia
     Dosage: 4 MILLIGRAM, QD
     Route: 048
  148. NITRAZEPAM [Concomitant]
     Active Substance: NITRAZEPAM
     Dosage: 4 MILLIGRAM, QD

REACTIONS (1)
  - Infection [Recovered/Resolved]
